FAERS Safety Report 26105431 (Version 1)
Quarter: 2025Q4

REPORT INFORMATION
  Report Type: Spontaneous
  Country: US (occurrence: US)
  Receive Date: 20251201
  Receipt Date: 20251201
  Transmission Date: 20260118
  Serious: Yes (Hospitalization, Other)
  Sender: RECORDATI
  Company Number: US-ORPHANEU-2025008570

PATIENT
  Age: 40 Year
  Sex: Female

DRUGS (9)
  1. OSILODROSTAT [Suspect]
     Active Substance: OSILODROSTAT
     Indication: Pituitary-dependent Cushing^s syndrome
     Dosage: 2 MG, BID (DOSE BEFORE PREGNANCY)
  2. OSILODROSTAT [Suspect]
     Active Substance: OSILODROSTAT
     Indication: ACTH-producing pituitary tumour
     Dosage: MAXIMUM DOSE OF 5 MG TWICE DAILY
  3. OSILODROSTAT [Suspect]
     Active Substance: OSILODROSTAT
     Indication: Surgical failure
     Dosage: 2 MG, BID (DOSE AT THE TIME OF DISCHARGE)
  4. OSILODROSTAT [Suspect]
     Active Substance: OSILODROSTAT
     Indication: Diabetes insipidus
  5. DESMOPRESSIN [Suspect]
     Active Substance: DESMOPRESSIN
     Indication: Pituitary-dependent Cushing^s syndrome
     Dosage: UNK, AS NEEDED
  6. DESMOPRESSIN [Suspect]
     Active Substance: DESMOPRESSIN
     Indication: ACTH-producing pituitary tumour
  7. DESMOPRESSIN [Suspect]
     Active Substance: DESMOPRESSIN
     Indication: Surgical failure
  8. DESMOPRESSIN [Suspect]
     Active Substance: DESMOPRESSIN
     Indication: Diabetes insipidus
  9. BETAMETHASONE [Concomitant]
     Active Substance: BETAMETHASONE
     Indication: Maternal therapy to enhance foetal lung maturity
     Dosage: UNK

REACTIONS (4)
  - Haemorrhage in pregnancy [Recovered/Resolved]
  - Haemorrhage in pregnancy [Recovered/Resolved]
  - Placenta praevia [Unknown]
  - Maternal exposure during pregnancy [Recovered/Resolved]
